FAERS Safety Report 23703735 (Version 1)
Quarter: 2024Q2

REPORT INFORMATION
  Report Type: Spontaneous
  Country: US (occurrence: US)
  Receive Date: 20240403
  Receipt Date: 20240403
  Transmission Date: 20240716
  Serious: No
  Sender: FDA-Public Use
  Company Number: US-Cardinal Health 414-CAHLYMPH-AE-23-23

PATIENT
  Age: 53 Year
  Sex: Female
  Weight: 102.1 kg

DRUGS (4)
  1. Radiation treatments [Concomitant]
  2. UNSPECIFIED INGREDIENT [Concomitant]
     Active Substance: UNSPECIFIED INGREDIENT
  3. UNSPECIFIED INGREDIENT [Suspect]
     Active Substance: UNSPECIFIED INGREDIENT
  4. LYMPHOSEEK [Suspect]
     Active Substance: TECHNETIUM TC-99M TILMANOCEPT
     Indication: Lymphatic mapping
     Route: 065
     Dates: start: 20221104, end: 20221104

REACTIONS (11)
  - Pain in extremity [Not Recovered/Not Resolved]
  - Confusional state [Not Recovered/Not Resolved]
  - Nausea [Not Recovered/Not Resolved]
  - Hallucination [Not Recovered/Not Resolved]
  - Depressed mood [Not Recovered/Not Resolved]
  - Anxiety [Not Recovered/Not Resolved]
  - Memory impairment [Not Recovered/Not Resolved]
  - Hypoaesthesia [Not Recovered/Not Resolved]
  - Paraesthesia [Not Recovered/Not Resolved]
  - Hyperhidrosis [Not Recovered/Not Resolved]
  - Nervousness [Not Recovered/Not Resolved]

NARRATIVE: CASE EVENT DATE: 20210101
